FAERS Safety Report 10388578 (Version 1)
Quarter: 2014Q3

REPORT INFORMATION
  Report Type: Spontaneous
  Country: US (occurrence: US)
  Receive Date: 20140815
  Receipt Date: 20140815
  Transmission Date: 20150326
  Serious: Yes (Other)
  Sender: FDA-Public Use
  Company Number: US-009507513-1408USA005484

PATIENT
  Sex: Female

DRUGS (10)
  1. VALIUM [Suspect]
     Active Substance: DIAZEPAM
     Indication: PRODUCT USED FOR UNKNOWN INDICATION
     Route: 065
  2. OXIGEN (OXYGEN) [Concomitant]
     Active Substance: OXYGEN
     Dosage: SUPPLEMENTAL WHILE SLEEPING AT NIGHT (2L)
  3. DUONEB [Concomitant]
     Active Substance: ALBUTEROL SULFATE\IPRATROPIUM BROMIDE
  4. COPEGUS [Suspect]
     Active Substance: RIBAVIRIN
     Dosage: 2 TABS PO QAM AND 3 TABS PO QPM (200 MG, 2 IN 1 D)
     Route: 048
  5. PEGASYS [Suspect]
     Active Substance: PEGINTERFERON ALFA-2A
     Dosage: 180 MICROGRAM, QW (180 MICOGRAM, 1 IN 1 WK)
     Route: 058
  6. VIVELLE DOT [Concomitant]
     Active Substance: ESTRADIOL
  7. VICTRELIS [Suspect]
     Active Substance: BOCEPREVIR
     Indication: HEPATITIS C VIRUS TEST POSITIVE
     Dosage: 4 CAPS PO TID WITH FOOD (200 MG, 3 IN 1 D)
     Route: 048
  8. ALBUTEROL SULFATE. [Concomitant]
     Active Substance: ALBUTEROL SULFATE
     Dosage: 2.5 MG/3ML, 0.083% (2.5 MG)
  9. FORMOTEROL [Concomitant]
     Active Substance: FORMOTEROL
  10. COPEGUS [Suspect]
     Active Substance: RIBAVIRIN
     Dosage: 3 DF, TID (3 TABS PR BID (200 MG, 2 IN 1 D)
     Route: 048

REACTIONS (8)
  - Drug intolerance [Unknown]
  - Suicide attempt [Unknown]
  - Mental disorder [Unknown]
  - Postpartum depression [Unknown]
  - Chronic hepatitis [Unknown]
  - Uterine cancer [Unknown]
  - Overdose [Unknown]
  - Hysterectomy [Unknown]

NARRATIVE: CASE EVENT DATE: 2008
